FAERS Safety Report 4364861-7 (Version None)
Quarter: 2004Q2

REPORT INFORMATION
  Report Type: 
  Country: None (occurrence: None)
  Receive Date: 20040521
  Receipt Date: 20040430
  Transmission Date: 20050107
  Serious: Yes (Hospitalization, Other)
  Sender: FDA-Public Use
  Company Number: US_0405102751

PATIENT
  Age: 53 Year
  Sex: Female
  Weight: 89 kg

DRUGS (4)
  1. HUMALOG [Suspect]
     Dosage: 160 U DAY
  2. HUMULIN R [Suspect]
     Dates: start: 19950101
  3. HUMULIN N [Suspect]
     Dates: start: 19950101
  4. LANTUS [Concomitant]

REACTIONS (6)
  - BLISTER [None]
  - BLOOD GLUCOSE INCREASED [None]
  - BREAST CANCER [None]
  - ERYTHEMA [None]
  - PALMAR-PLANTAR ERYTHRODYSAESTHESIA SYNDROME [None]
  - PRURITUS [None]
